FAERS Safety Report 5547026-2 (Version None)
Quarter: 2007Q4

REPORT INFORMATION
  Report Type: 
  Country: None (occurrence: None)
  Receive Date: 20071211
  Receipt Date: 20070313
  Transmission Date: 20080405
  Serious: No
  Sender: FDA-Public Use
  Company Number: US-AMGEN-KDL214854

PATIENT
  Sex: Female

DRUGS (3)
  1. ENBREL [Suspect]
     Indication: RHEUMATOID ARTHRITIS
     Route: 058
     Dates: start: 20060601
  2. PLAQUENIL [Concomitant]
     Dates: start: 19880101
  3. METHOTREXATE [Concomitant]
     Dates: start: 19880101

REACTIONS (3)
  - OEDEMA PERIPHERAL [None]
  - RHEUMATOID ARTHRITIS [None]
  - SKIN ULCER [None]
